FAERS Safety Report 17487951 (Version 10)
Quarter: 2022Q3

REPORT INFORMATION
  Report Type: Spontaneous
  Country: US (occurrence: US)
  Receive Date: 20200303
  Receipt Date: 20220825
  Transmission Date: 20221027
  Serious: Yes (Hospitalization)
  Sender: FDA-Public Use
  Company Number: US-PFIZER INC-2019288811

PATIENT
  Age: 57 Year
  Sex: Male

DRUGS (3)
  1. SUTENT [Suspect]
     Active Substance: SUNITINIB MALATE
     Indication: Gastrointestinal stromal tumour
     Dosage: 37.5 MG, DAILY, 4 WEEKS ON 2 WEEKS OFF
     Route: 048
  2. SUTENT [Suspect]
     Active Substance: SUNITINIB MALATE
     Indication: Connective tissue neoplasm
  3. SUTENT [Suspect]
     Active Substance: SUNITINIB MALATE
     Indication: Iron deficiency anaemia

REACTIONS (7)
  - Fall [Recovered/Resolved]
  - Mood altered [Unknown]
  - Neoplasm progression [Unknown]
  - Depression [Unknown]
  - Frustration tolerance decreased [Unknown]
  - Blood pressure abnormal [Recovering/Resolving]
  - Dysphonia [Unknown]
